FAERS Safety Report 8508544 (Version 4)
Quarter: 2013Q3

REPORT INFORMATION
  Report Type: Spontaneous
  Country: US (occurrence: US)
  Receive Date: 20120412
  Receipt Date: 20130708
  Transmission Date: 20140515
  Serious: No
  Sender: FDA-Public Use
  Company Number: US-ASTRAZENECA-2011SE27130

PATIENT
  Age: 53 Year
  Sex: Female

DRUGS (1)
  1. NEXIUM [Suspect]
     Route: 048

REACTIONS (9)
  - Oesophageal disorder [Unknown]
  - Gastrooesophageal reflux disease [Unknown]
  - Pain [Unknown]
  - Salmonellosis [Unknown]
  - Aphagia [Unknown]
  - Dyspepsia [Unknown]
  - Oropharyngeal pain [Unknown]
  - Dyspepsia [Unknown]
  - Drug dose omission [Unknown]
